FAERS Safety Report 4372688-5 (Version None)
Quarter: 2004Q2

REPORT INFORMATION
  Report Type: 
  Country: None (occurrence: None)
  Receive Date: 20040608
  Receipt Date: 20040526
  Transmission Date: 20050107
  Serious: Yes (Hospitalization, Disabling)
  Sender: FDA-Public Use
  Company Number: GB-JNJFOC-20040506180

PATIENT
  Sex: Female

DRUGS (12)
  1. REMICADE [Suspect]
     Indication: RHEUMATOID ARTHRITIS
     Route: 042
  2. THYROXINE [Concomitant]
  3. FOLIC ACID [Concomitant]
  4. PREDNISOLONE [Concomitant]
  5. CALCICHEW [Concomitant]
  6. ALENDRONATE SODIUM [Concomitant]
  7. ATENOLOL [Concomitant]
  8. RANITIDINE [Concomitant]
  9. RIFINAH [Concomitant]
  10. RIFINAH [Concomitant]
  11. ETODOLAC [Concomitant]
  12. METHOTREXATE [Concomitant]

REACTIONS (3)
  - METASTASIS [None]
  - SPINAL COMPRESSION FRACTURE [None]
  - SQUAMOUS CELL CARCINOMA [None]
